FAERS Safety Report 16821802 (Version 1)
Quarter: 2019Q3

REPORT INFORMATION
  Report Type: Report from Study
  Country: None (occurrence: US)
  Receive Date: 20190918
  Receipt Date: 20190918
  Transmission Date: 20191005
  Serious: Yes (Hospitalization, Other)
  Sender: FDA-Public Use
  Company Number: US-ABBVIE-19K-163-2929553-00

PATIENT
  Age: 76 Year
  Sex: Male

DRUGS (1)
  1. VENCLEXTA [Suspect]
     Active Substance: VENETOCLAX
     Indication: ACUTE MYELOID LEUKAEMIA
     Route: 048
     Dates: start: 20190227, end: 20190907

REACTIONS (4)
  - Transient ischaemic attack [Unknown]
  - Acute myeloid leukaemia [Unknown]
  - Anaemia [Unknown]
  - Dysarthria [Unknown]

NARRATIVE: CASE EVENT DATE: 2019
